FAERS Safety Report 9382228 (Version 2)
Quarter: 2013Q4

REPORT INFORMATION
  Report Type: Spontaneous
  Country: US (occurrence: US)
  Receive Date: 20130703
  Receipt Date: 20131122
  Transmission Date: 20140711
  Serious: Yes (Death, Hospitalization, Other)
  Sender: FDA-Public Use
  Company Number: US-GILEAD-2013-0078356

PATIENT
  Sex: Female

DRUGS (13)
  1. LETAIRIS [Suspect]
     Indication: PULMONARY HYPERTENSION
     Dosage: 5 MG, QD
     Route: 048
     Dates: start: 20130422
  2. LETAIRIS [Suspect]
     Indication: SYSTEMIC LUPUS ERYTHEMATOSUS
  3. LASIX                              /00032601/ [Concomitant]
  4. K-TAB [Concomitant]
  5. DIGOXIN [Concomitant]
  6. WARFARIN [Concomitant]
  7. PREDNISONE [Concomitant]
  8. IMURAN                             /00001501/ [Concomitant]
  9. EFFEXOR [Concomitant]
  10. ZYPREXA [Concomitant]
  11. SERAX                              /00040901/ [Concomitant]
  12. AMBIEN [Concomitant]
  13. FERROUS SULFATE [Concomitant]

REACTIONS (5)
  - Cardiac arrest [Fatal]
  - Pulmonary hypertension [Unknown]
  - Gastrointestinal haemorrhage [Unknown]
  - Perirectal abscess [Unknown]
  - Anaemia [Unknown]
